FAERS Safety Report 4695862-7 (Version None)
Quarter: 2005Q2

REPORT INFORMATION
  Report Type: 
  Country: None (occurrence: None)
  Receive Date: 20050621
  Receipt Date: 20050408
  Transmission Date: 20051028
  Serious: Yes (Other)
  Sender: FDA-Public Use
  Company Number: US-SANOFI-SYNTHELABO-F01200500563

PATIENT
  Sex: Male

DRUGS (9)
  1. OXALIPLATIN [Suspect]
     Indication: COLORECTAL CANCER METASTATIC
     Route: 042
     Dates: start: 20050302, end: 20050302
  2. FLUOROURACIL [Suspect]
     Dosage: 800 MG AND 4800 MG IV CONTINUOUS INFUSION
     Route: 042
     Dates: start: 20050302, end: 20050302
  3. LEUCOVORIN [Suspect]
     Route: 042
     Dates: start: 20050302, end: 20050302
  4. BEVACIZUMAB [Suspect]
     Route: 042
     Dates: start: 20050302, end: 20050302
  5. LIPITOR [Concomitant]
  6. AVANDIA [Concomitant]
  7. COLCHICINE [Concomitant]
  8. ALTACE [Concomitant]
  9. HYDROCHLOROTHIAZIDE [Concomitant]

REACTIONS (3)
  - IMPAIRED HEALING [None]
  - INCISION SITE HAEMORRHAGE [None]
  - POSTOPERATIVE WOUND COMPLICATION [None]
